FAERS Safety Report 9364985 (Version 1)
Quarter: 2013Q2

REPORT INFORMATION
  Report Type: Spontaneous
  Country: CA (occurrence: CA)
  Receive Date: 20130624
  Receipt Date: 20130624
  Transmission Date: 20140414
  Serious: Yes (Other)
  Sender: FDA-Public Use
  Company Number: CHPA2013CA010105

PATIENT
  Sex: Male

DRUGS (1)
  1. TRANSDERM-V [Suspect]
     Dosage: 1 DF, Q72H
     Route: 062

REACTIONS (1)
  - Abnormal behaviour [Recovered/Resolved]
